FAERS Safety Report 12238173 (Version 1)
Quarter: 2016Q2

REPORT INFORMATION
  Report Type: Spontaneous
  Country: US (occurrence: US)
  Receive Date: 20160405
  Receipt Date: 20160405
  Transmission Date: 20160815
  Serious: Yes (Hospitalization, Other)
  Sender: FDA-Public Use
  Company Number: US-GLAXOSMITHKLINE-US2016044777

PATIENT
  Age: 64 Year
  Sex: Female

DRUGS (9)
  1. VENTOLIN HFA [Suspect]
     Active Substance: ALBUTEROL SULFATE
     Indication: ASTHMA
     Dosage: 2 PUFF(S), EVERY 4 HOURS, PRN
     Route: 055
  2. LOSARTAN. [Concomitant]
     Active Substance: LOSARTAN
  3. PRIMIDONE. [Concomitant]
     Active Substance: PRIMIDONE
  4. TOPIRAMATE. [Concomitant]
     Active Substance: TOPIRAMATE
  5. ZYFLO [Concomitant]
     Active Substance: ZILEUTON
  6. ADVAIR HFA [Suspect]
     Active Substance: FLUTICASONE PROPIONATE\SALMETEROL XINAFOATE
     Indication: ASTHMA
     Dosage: 2 PUFF(S), BID
     Route: 055
     Dates: start: 201602
  7. ELIQUIS [Concomitant]
     Active Substance: APIXABAN
  8. GABAPENTIN. [Concomitant]
     Active Substance: GABAPENTIN
  9. VALACYCLOVIR [Concomitant]
     Active Substance: VALACYCLOVIR HYDROCHLORIDE

REACTIONS (10)
  - Breast cancer [Unknown]
  - Post procedural infection [Unknown]
  - Blood disorder [Not Recovered/Not Resolved]
  - Haematocrit increased [Not Recovered/Not Resolved]
  - Pulmonary thrombosis [Recovered/Resolved]
  - Staphylococcal infection [Unknown]
  - Haemoglobin increased [Not Recovered/Not Resolved]
  - Aspergillus infection [Unknown]
  - Dural arteriovenous fistula [Unknown]
  - Scar excision [Recovered/Resolved with Sequelae]

NARRATIVE: CASE EVENT DATE: 1980
